FAERS Safety Report 14893512 (Version 1)
Quarter: 2018Q2

REPORT INFORMATION
  Report Type: Spontaneous
  Country: CN (occurrence: CN)
  Receive Date: 20180514
  Receipt Date: 20180514
  Transmission Date: 20180711
  Serious: Yes (Hospitalization)
  Sender: FDA-Public Use
  Company Number: CN-ROCHE-2118458

PATIENT
  Age: 62 Year
  Sex: Female

DRUGS (2)
  1. XELODA [Suspect]
     Active Substance: CAPECITABINE
     Indication: COLON CANCER
     Dosage: 3 TABLET ONCE
     Route: 048
     Dates: start: 20170908
  2. OXALIPLATIN. [Suspect]
     Active Substance: OXALIPLATIN
     Indication: COLON CANCER
     Route: 041
     Dates: start: 20170908

REACTIONS (7)
  - Ocular icterus [Recovered/Resolved]
  - Hepatic function abnormal [Recovered/Resolved]
  - Asthenia [Unknown]
  - Retching [Recovered/Resolved]
  - Bone marrow failure [Recovering/Resolving]
  - Yellow skin [Recovered/Resolved]
  - Abdominal discomfort [Recovered/Resolved]

NARRATIVE: CASE EVENT DATE: 20171125
